FAERS Safety Report 16871217 (Version 3)
Quarter: 2019Q4

REPORT INFORMATION
  Report Type: Report from Study
  Country: None (occurrence: US)
  Receive Date: 20190930
  Receipt Date: 20191031
  Transmission Date: 20200122
  Serious: Yes (Other)
  Sender: FDA-Public Use
  Company Number: US-ABBVIE-19K-163-2854670-00

PATIENT
  Age: 49 Year
  Sex: Male

DRUGS (2)
  1. HUMIRA [Suspect]
     Active Substance: ADALIMUMAB
     Route: 058
     Dates: start: 20191006
  2. HUMIRA [Suspect]
     Active Substance: ADALIMUMAB
     Indication: RHEUMATOID ARTHRITIS
     Route: 058
     Dates: start: 201901, end: 20190712

REACTIONS (5)
  - Ligament rupture [Recovering/Resolving]
  - Loss of personal independence in daily activities [Unknown]
  - Arthralgia [Unknown]
  - Muscle rupture [Unknown]
  - Joint stiffness [Unknown]

NARRATIVE: CASE EVENT DATE: 2019
